FAERS Safety Report 19307821 (Version 1)
Quarter: 2021Q2

REPORT INFORMATION
  Report Type: Report from Study
  Country: CA (occurrence: CA)
  Receive Date: 20210526
  Receipt Date: 20210526
  Transmission Date: 20210717
  Serious: Yes (Other)
  Sender: FDA-Public Use
  Company Number: CA-NALPROPION PHARMACEUTICALS INC.-2020-010796

PATIENT

DRUGS (14)
  1. CONTRAVE [Suspect]
     Active Substance: BUPROPION HYDROCHLORIDE\NALTREXONE HYDROCHLORIDE
     Dosage: 90MG/08MG; 1 TAB IN MORNING AND 2 TAB IN THE EVENING (25/JAN/2021 (APPROX) STOPPED APPROX 18/APR/202
     Route: 048
     Dates: start: 202101, end: 202104
  2. CONTRAVE [Suspect]
     Active Substance: BUPROPION HYDROCHLORIDE\NALTREXONE HYDROCHLORIDE
     Dosage: 90/8 MG, 2 TABS TWICE A DAY
     Route: 048
     Dates: start: 20210510
  3. CONTRAVE [Suspect]
     Active Substance: BUPROPION HYDROCHLORIDE\NALTREXONE HYDROCHLORIDE
     Dosage: 90MG/08MG (1 DOSAGE FORMS, 1 IN 12 HR)
     Route: 048
     Dates: start: 20200703, end: 20200709
  4. CONTRAVE [Suspect]
     Active Substance: BUPROPION HYDROCHLORIDE\NALTREXONE HYDROCHLORIDE
     Dosage: 90MG/08MG 2 TABLETS IN THE MORNING AND 1 TABLET IN THE EVENING
     Route: 048
     Dates: start: 20200710, end: 20200716
  5. CONTRAVE [Suspect]
     Active Substance: BUPROPION HYDROCHLORIDE\NALTREXONE HYDROCHLORIDE
     Dosage: 90/8 MG, 1 TAB TWICE DAILY
     Route: 048
     Dates: start: 20210503, end: 20210507
  6. ROBAXACET [Concomitant]
     Active Substance: ACETAMINOPHEN\METHOCARBAMOL
     Indication: BACK PAIN
     Dosage: AS NEEDED (1 DOSAGE FORMS)
     Route: 048
  7. ATENOLOL. [Suspect]
     Active Substance: ATENOLOL
     Dosage: DOSE REDUCED
     Route: 048
     Dates: start: 202009, end: 202102
  8. PANTOPRAZOLE [Concomitant]
     Active Substance: PANTOPRAZOLE
     Indication: HYPERCHLORHYDRIA
     Dosage: 40 MG ???APR?2021
     Route: 048
  9. CONTRAVE [Suspect]
     Active Substance: BUPROPION HYDROCHLORIDE\NALTREXONE HYDROCHLORIDE
     Indication: WEIGHT CONTROL
     Dosage: 90MG/08MG (1 DOSAGE FORMS, 1 IN 1 D)
     Route: 048
     Dates: start: 20200626, end: 20200702
  10. CONTRAVE [Suspect]
     Active Substance: BUPROPION HYDROCHLORIDE\NALTREXONE HYDROCHLORIDE
     Dosage: 90MG/08MG (2 DOSAGE FORMS, 1 IN 12 HR)
     Route: 048
     Dates: start: 20200717, end: 202101
  11. ESCITALOPRAM [Concomitant]
     Active Substance: ESCITALOPRAM OXALATE
     Indication: ANXIETY
     Dosage: 30 MG, DAILY
     Route: 048
  12. CONTRAVE [Suspect]
     Active Substance: BUPROPION HYDROCHLORIDE\NALTREXONE HYDROCHLORIDE
     Dosage: 90/8 MG, 1 TAB IN MORNING, 2 TABS IN EVENING
     Route: 048
     Dates: start: 20210508, end: 20210509
  13. ATENOLOL. [Suspect]
     Active Substance: ATENOLOL
     Indication: HYPERTENSION
     Dosage: DAILY ???SEP?2020
     Route: 048
  14. COVERSYL                           /00790702/ [Concomitant]
     Active Substance: PERINDOPRIL
     Indication: HYPERTENSION
     Dosage: DOSE: 8/2.5MG DAILY
     Route: 048

REACTIONS (21)
  - Vocal cord disorder [Unknown]
  - Dysphonia [Not Recovered/Not Resolved]
  - Anxiety [Not Recovered/Not Resolved]
  - Intentional product use issue [Unknown]
  - Abdominal distension [Unknown]
  - Dry mouth [Unknown]
  - Dry throat [Not Recovered/Not Resolved]
  - Blood pressure decreased [Not Recovered/Not Resolved]
  - Heart rate decreased [Unknown]
  - Agitation [Not Recovered/Not Resolved]
  - Insomnia [Not Recovered/Not Resolved]
  - Nervousness [Recovered/Resolved]
  - Fatigue [Unknown]
  - Pain in extremity [Not Recovered/Not Resolved]
  - Gastric pH decreased [Unknown]
  - Drug titration error [Unknown]
  - Medial tibial stress syndrome [Unknown]
  - Constipation [Not Recovered/Not Resolved]
  - Stress fracture [Not Recovered/Not Resolved]
  - Viral infection [Unknown]
  - Abdominal pain upper [Recovering/Resolving]

NARRATIVE: CASE EVENT DATE: 2020
